FAERS Safety Report 6231807-6 (Version None)
Quarter: 2009Q2

REPORT INFORMATION
  Report Type: 
  Country: None (occurrence: None)
  Receive Date: 20090616
  Receipt Date: 20090609
  Transmission Date: 20091009
  Serious: Yes (Other)
  Sender: FDA-Public Use
  Company Number: US-JNJFOC-20090603609

PATIENT
  Age: 47 Year
  Sex: Female
  Weight: 64.41 kg

DRUGS (1)
  1. EXTRA STRENGTH TYLENOL [Suspect]
     Indication: INSOMNIA
     Dosage: 1-2 CAPLETS EVERY NIGHT
     Route: 048

REACTIONS (2)
  - HALLUCINATION, VISUAL [None]
  - INTENTIONAL DRUG MISUSE [None]
